FAERS Safety Report 5496266-X (Version None)
Quarter: 2007Q4

REPORT INFORMATION
  Report Type: 
  Country: None (occurrence: None)
  Receive Date: 20071025
  Receipt Date: 20070319
  Transmission Date: 20080405
  Serious: No
  Sender: FDA-Public Use
  Company Number: A0643707A

PATIENT
  Age: 80 Year
  Sex: Female

DRUGS (9)
  1. ADVAIR DISKUS 100/50 [Suspect]
     Indication: CHRONIC OBSTRUCTIVE PULMONARY DISEASE
     Dosage: 1PUFF PER DAY
     Route: 055
     Dates: start: 20070305
  2. AVALIDE [Concomitant]
  3. ASPIRIN [Concomitant]
  4. SIMVASTATIN [Concomitant]
  5. NAPROXEN [Concomitant]
  6. LEVOXYL [Concomitant]
  7. METOPROLOL [Concomitant]
  8. FLUTICASONE PROPIONATE [Concomitant]
     Route: 045
  9. OXYGEN [Concomitant]

REACTIONS (3)
  - DIARRHOEA [None]
  - FAECAL INCONTINENCE [None]
  - HEADACHE [None]
